FAERS Safety Report 9395480 (Version 1)
Quarter: 2013Q3

REPORT INFORMATION
  Report Type: Spontaneous
  Country: DE (occurrence: DE)
  Receive Date: 20130711
  Receipt Date: 20130711
  Transmission Date: 20140515
  Serious: Yes (Life-Threatening, Hospitalization, Other)
  Sender: FDA-Public Use
  Company Number: DE-ELI_LILLY_AND_COMPANY-DE201303009238

PATIENT
  Sex: Male

DRUGS (4)
  1. ZYPREXA [Suspect]
     Dosage: UNK, UNKNOWN
     Route: 065
  2. ACTRAPID                           /00646001/ [Concomitant]
     Indication: DIABETES MELLITUS
     Dosage: 1 DF, UNKNOWN
  3. LEXOTANIL [Concomitant]
     Dosage: 1 DF, PRN
  4. ALCOHOL [Concomitant]

REACTIONS (14)
  - Suicide attempt [Recovered/Resolved with Sequelae]
  - Cyanosis [Unknown]
  - Coma [Unknown]
  - Brain injury [Unknown]
  - Pneumonia aspiration [Unknown]
  - Convulsion [Unknown]
  - Depression [Unknown]
  - Toxicity to various agents [Unknown]
  - Dysphagia [Unknown]
  - Memory impairment [Unknown]
  - Vomiting [Unknown]
  - Alcohol withdrawal syndrome [Unknown]
  - Hypertension [Unknown]
  - Intentional overdose [Unknown]
